FAERS Safety Report 25668728 (Version 1)
Quarter: 2025Q3

REPORT INFORMATION
  Report Type: Spontaneous
  Country: US (occurrence: US)
  Receive Date: 20250812
  Receipt Date: 20250812
  Transmission Date: 20251021
  Serious: No
  Sender: RECKITT BENCKISER
  Company Number: US-PROD-AS2-212756134-20-25-USA-RB-0010851

PATIENT
  Age: 52 Year
  Sex: Male

DRUGS (4)
  1. MUCINEX [Suspect]
     Active Substance: GUAIFENESIN
     Indication: Respiratory tract congestion
     Route: 048
     Dates: start: 20250530, end: 20250530
  2. MUCINEX [Suspect]
     Active Substance: GUAIFENESIN
     Indication: Respiratory tract congestion
     Route: 048
     Dates: start: 20250530, end: 20250530
  3. MONTELUKAST [Concomitant]
     Active Substance: MONTELUKAST
     Indication: Hypersensitivity
     Route: 065
  4. TRELEGY ELLIPTA [Concomitant]
     Active Substance: FLUTICASONE FUROATE\UMECLIDINIUM BROMIDE\VILANTEROL TRIFENATATE
     Indication: Asthma
     Route: 065

REACTIONS (3)
  - Hypersensitivity [Recovered/Resolved]
  - Oral mucosal eruption [Recovered/Resolved]
  - Rash [Recovered/Resolved]

NARRATIVE: CASE EVENT DATE: 20250530
